FAERS Safety Report 14571219 (Version 2)
Quarter: 2018Q1

REPORT INFORMATION
  Report Type: Report from Study
  Country: US (occurrence: US)
  Receive Date: 20180226
  Receipt Date: 20180306
  Transmission Date: 20180509
  Serious: Yes (Death, Hospitalization)
  Sender: FDA-Public Use
  Company Number: PHHY2018US029645

PATIENT
  Age: 49 Year
  Sex: Male
  Weight: 76.2 kg

DRUGS (1)
  1. GSK1120212 [Suspect]
     Active Substance: TRAMETINIB
     Indication: PROSTATE CANCER METASTATIC
     Dosage: 2 MG, QD
     Route: 048
     Dates: start: 20171228, end: 20180213

REACTIONS (9)
  - Thrombocytopenia [Unknown]
  - Streptococcal bacteraemia [Unknown]
  - Vomiting [Unknown]
  - Pancytopenia [Unknown]
  - Upper gastrointestinal haemorrhage [Recovered/Resolved]
  - Melaena [Unknown]
  - Haemoptysis [Unknown]
  - Prostate cancer metastatic [Fatal]
  - Malignant neoplasm progression [Fatal]

NARRATIVE: CASE EVENT DATE: 20180213
